FAERS Safety Report 7967239-X (Version None)
Quarter: 2011Q4

REPORT INFORMATION
  Report Type: 
  Country: None (occurrence: None)
  Receive Date: 20111206
  Receipt Date: 20111107
  Transmission Date: 20120403
  Serious: Yes (Congenital Anomaly)
  Sender: FDA-Public Use
  Company Number: ADR-UNK-040

PATIENT
  Age: 238 Day
  Sex: Male
  Weight: 1.55 kg

DRUGS (5)
  1. KALETRA [Suspect]
  2. NEVIRAPINE [Suspect]
     Indication: ACQUIRED IMMUNODEFICIENCY SYNDROME
     Dosage: 400 MG/DAY, ORAL
     Route: 048
     Dates: start: 20091015, end: 20100215
  3. VIREAD [Suspect]
  4. FOLATE SUPPLEMENT [Concomitant]
  5. LAMIVUDINE/ZIDOVUDINE [Suspect]
     Indication: ACQUIRED IMMUNODEFICIENCY SYNDROME
     Dosage: BID + ORAL
     Route: 048
     Dates: start: 20091015

REACTIONS (3)
  - MATERNAL DRUGS AFFECTING FOETUS [None]
  - CARDIAC VENTRICULAR DISORDER [None]
  - VENTRICULAR SEPTAL DEFECT [None]
